FAERS Safety Report 10119356 (Version 1)
Quarter: 2014Q2

REPORT INFORMATION
  Report Type: Spontaneous
  Country: US (occurrence: US)
  Receive Date: 20140425
  Receipt Date: 20140425
  Transmission Date: 20141212
  Serious: Yes (Other)
  Sender: FDA-Public Use
  Company Number: US-PFIZER INC-2014113811

PATIENT
  Age: 78 Year
  Sex: Female
  Weight: 53.52 kg

DRUGS (1)
  1. CELEBREX [Suspect]
     Indication: ARTHRITIS
     Dosage: 200 MG, DAILY

REACTIONS (3)
  - Fall [Unknown]
  - Back disorder [Unknown]
  - Paralysis [Unknown]
